FAERS Safety Report 25375798 (Version 3)
Quarter: 2025Q4

REPORT INFORMATION
  Report Type: Spontaneous
  Country: US (occurrence: US)
  Receive Date: 20250529
  Receipt Date: 20251121
  Transmission Date: 20260117
  Serious: No
  Sender: SANOFI AVENTIS
  Company Number: US-SA-2025SA152748

PATIENT
  Age: 30 Year
  Sex: Female

DRUGS (1)
  1. DUPIXENT [Suspect]
     Active Substance: DUPILUMAB
     Indication: Idiopathic urticaria
     Dosage: 300 MG, QOW
     Route: 058

REACTIONS (6)
  - Fatigue [Unknown]
  - Sleep disorder due to a general medical condition [Unknown]
  - Urticaria [Unknown]
  - Pruritus [Unknown]
  - Idiopathic urticaria [Unknown]
  - Condition aggravated [Unknown]
